FAERS Safety Report 4381788-5 (Version None)
Quarter: 2004Q2

REPORT INFORMATION
  Report Type: 
  Country: None (occurrence: None)
  Receive Date: 20040615
  Receipt Date: 20040601
  Transmission Date: 20050107
  Serious: Yes (Death)
  Sender: FDA-Public Use
  Company Number: JP-JNJFOC-20040602013

PATIENT
  Age: 75 Year
  Sex: Male

DRUGS (6)
  1. FENTANYL [Suspect]
     Indication: CANCER PAIN
     Dosage: 2.5 MG, 1 IN 72 HOUR, TRANSDERMAL
     Route: 062
     Dates: start: 20040515, end: 20040523
  2. THIAMINE MONOPHOSPHATE DISULFIDE B6 B12 COMBINED (ALL OTHR THERAPEUTIC [Concomitant]
  3. LACTATED RINGER'S SOLUTION GLUC (ALL OTHER THERAPEUTIC PRODUCTS) [Concomitant]
  4. GLUCOSE (GLUCOSE) [Concomitant]
  5. FUROSEMIDE [Concomitant]
  6. MORPHINE [Concomitant]

REACTIONS (1)
  - DEATH [None]
